FAERS Safety Report 5791711-4 (Version None)
Quarter: 2008Q2

REPORT INFORMATION
  Report Type: 
  Country: None (occurrence: None)
  Receive Date: 20080626
  Receipt Date: 20080507
  Transmission Date: 20081010
  Serious: No
  Sender: FDA-Public Use
  Company Number: A0714190A

PATIENT

DRUGS (3)
  1. ALLI [Suspect]
     Indication: DRUG USE FOR UNKNOWN INDICATION
  2. METFORMIN HCL [Concomitant]
     Indication: OVARIAN CYST
  3. GLUCOPHAGE [Concomitant]

REACTIONS (4)
  - ARTHROPATHY [None]
  - BREATH ODOUR [None]
  - DYSGEUSIA [None]
  - TENDONITIS [None]
